FAERS Safety Report 14194546 (Version 1)
Quarter: 2017Q4

REPORT INFORMATION
  Report Type: Spontaneous
  Country: US (occurrence: US)
  Receive Date: 20171115
  Receipt Date: 20171115
  Transmission Date: 20180321
  Serious: Yes (Disabling)
  Sender: FDA-Public Use
  Company Number: None

PATIENT
  Age: 23 Year
  Sex: Female
  Weight: 49.5 kg

DRUGS (2)
  1. TRIAMCINOLONE [Suspect]
     Active Substance: TRIAMCINOLONE
     Indication: ECZEMA
  2. DUPIXENT [Concomitant]
     Active Substance: DUPILUMAB

REACTIONS (7)
  - Erythema [None]
  - Pruritus [None]
  - Insomnia [None]
  - Depression [None]
  - Alopecia [None]
  - Loss of personal independence in daily activities [None]
  - Weight decreased [None]

NARRATIVE: CASE EVENT DATE: 20160815
